FAERS Safety Report 6623348-9 (Version None)
Quarter: 2010Q1

REPORT INFORMATION
  Report Type: 
  Country: None (occurrence: None)
  Receive Date: 20100310
  Receipt Date: 20091201
  Transmission Date: 20100710
  Serious: No
  Sender: FDA-Public Use
  Company Number: US-BIOGENIDEC-2009BI039104

PATIENT
  Sex: Female

DRUGS (1)
  1. AVONEX [Suspect]
     Indication: DRUG USE FOR UNKNOWN INDICATION
     Route: 030

REACTIONS (7)
  - ASTHENIA [None]
  - BLADDER DISORDER [None]
  - DEPRESSION [None]
  - DIZZINESS [None]
  - MUSCLE SPASTICITY [None]
  - PERONEAL NERVE PALSY [None]
  - VERTIGO [None]
